FAERS Safety Report 4350467-2 (Version None)
Quarter: 2004Q2

REPORT INFORMATION
  Report Type: 
  Country: None (occurrence: None)
  Receive Date: 20040430
  Receipt Date: 20040108
  Transmission Date: 20050107
  Serious: Yes (Hospitalization)
  Sender: FDA-Public Use
  Company Number: PHFR2004GB00545

PATIENT
  Age: 43 Year
  Sex: Male

DRUGS (2)
  1. CLOZARIL [Suspect]
     Indication: SCHIZOPHRENIA
     Route: 048
     Dates: start: 19900903, end: 20031210
  2. DIAZEPAM [Concomitant]
     Dosage: 15MG/DAY
     Route: 048
     Dates: start: 20031201, end: 20040101

REACTIONS (3)
  - CONVULSION [None]
  - DRUG WITHDRAWAL CONVULSIONS [None]
  - NEUTROPENIA [None]
